FAERS Safety Report 6514893 (Version 7)
Quarter: 2014Q1

REPORT INFORMATION
  Report Type: Spontaneous
  Country: US (occurrence: US)
  Receive Date: 20071227
  Receipt Date: 20140325
  Transmission Date: 20141002
  Serious: Yes (Other)
  Sender: FDA-Public Use
  Company Number: US-BAYER-200716900NA

PATIENT
  Age: 20 Year
  Sex: Female
  Weight: 80.73 kg

DRUGS (3)
  1. MIRENA [Suspect]
     Indication: CONTRACEPTION
     Dosage: 20 ?G (DAILY DOSE), INTRA-UTERINE
     Route: 015
     Dates: start: 20051101, end: 20080128
  2. LEXAPRO [Concomitant]
  3. TOPAMAX [Concomitant]

REACTIONS (22)
  - Uterine perforation [Recovered/Resolved with Sequelae]
  - Post procedural haemorrhage [Recovered/Resolved with Sequelae]
  - Procedural pain [Recovered/Resolved with Sequelae]
  - Discomfort [Recovered/Resolved with Sequelae]
  - Dyspareunia [Recovered/Resolved with Sequelae]
  - Abdominal pain [Recovered/Resolved with Sequelae]
  - Device dislocation [Recovered/Resolved]
  - Pelvic adhesions [None]
  - Pelvic pain [None]
  - Dysmenorrhoea [None]
  - Premature menopause [None]
  - Infertility female [None]
  - Endometriosis [None]
  - Gastrointestinal disorder [None]
  - Uterine fibrosis [None]
  - Vaginal disorder [None]
  - Weight increased [None]
  - Anxiety [None]
  - Depression [None]
  - Emotional disorder [None]
  - Ovarian disorder [None]
  - Fallopian tube disorder [None]
